FAERS Safety Report 12936439 (Version 9)
Quarter: 2018Q1

REPORT INFORMATION
  Report Type: Report from Study
  Country: US (occurrence: US)
  Receive Date: 20161114
  Receipt Date: 20180211
  Transmission Date: 20180508
  Serious: Yes (Hospitalization, Other)
  Sender: FDA-Public Use
  Company Number: US-B.I. PHARMACEUTICALS,INC./RIDGEFIELD-2016-BI-38522BP

PATIENT
  Age: 73 Year
  Sex: Female

DRUGS (5)
  1. OFEV [Suspect]
     Active Substance: NINTEDANIB
     Route: 048
     Dates: start: 201601, end: 201611
  2. OFEV [Suspect]
     Active Substance: NINTEDANIB
     Indication: IDIOPATHIC PULMONARY FIBROSIS
     Route: 048
     Dates: start: 20160419, end: 201610
  3. ALBUTEROL. [Concomitant]
     Active Substance: ALBUTEROL
     Indication: DYSPNOEA
     Dosage: DAILY DOSE: 2PUFFS
     Route: 055
     Dates: start: 201509
  4. PROTONIX [Concomitant]
     Active Substance: PANTOPRAZOLE SODIUM
     Indication: GASTROOESOPHAGEAL REFLUX DISEASE
     Route: 048
     Dates: start: 201509
  5. OFEV [Suspect]
     Active Substance: NINTEDANIB
     Route: 048

REACTIONS (20)
  - Dyspepsia [Unknown]
  - Productive cough [Unknown]
  - Diarrhoea [Not Recovered/Not Resolved]
  - Headache [Unknown]
  - Bronchitis [Recovered/Resolved]
  - Cholecystitis [Recovered/Resolved]
  - Dyspnoea [Unknown]
  - Bronchitis [Unknown]
  - Cough [Unknown]
  - Mucosal discolouration [Unknown]
  - Pulmonary mass [Unknown]
  - Cholecystitis [Recovered/Resolved]
  - Pneumonia [Unknown]
  - Cholecystectomy [Unknown]
  - Nausea [Not Recovered/Not Resolved]
  - Bronchitis [Recovered/Resolved]
  - Hiatus hernia [Unknown]
  - Gallbladder operation [Unknown]
  - Vomiting [Not Recovered/Not Resolved]
  - Fatigue [Unknown]

NARRATIVE: CASE EVENT DATE: 201609
